FAERS Safety Report 4827625-3 (Version None)
Quarter: 2005Q4

REPORT INFORMATION
  Report Type: 
  Country: None (occurrence: None)
  Receive Date: 20051110
  Receipt Date: 20051027
  Transmission Date: 20060501
  Serious: Yes (Death, Other)
  Sender: FDA-Public Use
  Company Number: GBR-2005-0001950

PATIENT
  Sex: Male

DRUGS (4)
  1. UNIPHYL [Suspect]
  2. ATROVENT [Suspect]
  3. FUROSEMIDE [Suspect]
     Dosage: 40 MG, DAILY
  4. LACTULOSE [Suspect]

REACTIONS (2)
  - CHRONIC OBSTRUCTIVE PULMONARY DISEASE [None]
  - LOWER RESPIRATORY TRACT INFECTION [None]
